FAERS Safety Report 7109672-4 (Version None)
Quarter: 2010Q4

REPORT INFORMATION
  Report Type: 
  Country: None (occurrence: None)
  Receive Date: 20101115
  Receipt Date: 20101115
  Transmission Date: 20110411
  Serious: Yes (Hospitalization)
  Sender: FDA-Public Use
  Company Number: None

PATIENT
  Age: 54 Year
  Sex: Male
  Weight: 104 kg

DRUGS (1)
  1. FUROSEMIDE [Suspect]
     Dosage: 80 MG EVERY DAY PO
     Route: 048
     Dates: start: 20100820, end: 20101022

REACTIONS (4)
  - DIZZINESS [None]
  - FALL [None]
  - FATIGUE [None]
  - HYPOTENSION [None]
